FAERS Safety Report 12412450 (Version 1)
Quarter: 2016Q2

REPORT INFORMATION
  Report Type: Spontaneous
  Country: US (occurrence: US)
  Receive Date: 20160527
  Receipt Date: 20160527
  Transmission Date: 20160815
  Serious: No
  Sender: FDA-Public Use
  Company Number: US-MDT-ADR-2016-00963

PATIENT
  Age: 62 Year
  Sex: Female
  Weight: 63 kg

DRUGS (18)
  1. BACLOFEN. [Suspect]
     Active Substance: BACLOFEN
     Route: 048
  2. LOSARTAN POTASSIUM. [Suspect]
     Active Substance: LOSARTAN POTASSIUM
     Route: 048
  3. FLUCASONE PROPIONATE [Suspect]
     Active Substance: FLUTICASONE PROPIONATE
     Dosage: 1 SPRAY EACH NOSTRIL TWICE PER DAY
     Route: 045
  4. MIRALAX [Suspect]
     Active Substance: POLYETHYLENE GLYCOL 3350
     Dosage: 1 CAPFUL ORALLY IN WATER OR JUICE DAILY
     Route: 048
  5. KLOR-CON [Suspect]
     Active Substance: POTASSIUM CHLORIDE
     Route: 048
  6. PROAIR HFA [Suspect]
     Active Substance: ALBUTEROL SULFATE
     Dosage: 2 PUFFS EVERY 6 HOURS AS NEEDED
     Route: 055
  7. CLOTRIMAZOLE AND BETAMETHASONE DIPROPIONATE [Suspect]
     Active Substance: BETAMETHASONE\BETAMETHASONE DIPROPIONATE\CLOTRIMAZOLE
     Dosage: APPLY TO AFFECTED AREA TWICE PER DAY
     Route: 061
  8. MONTELUKAST SODIUM. [Suspect]
     Active Substance: MONTELUKAST SODIUM
     Route: 048
  9. LIPITOR [Suspect]
     Active Substance: ATORVASTATIN CALCIUM
     Route: 048
  10. ALBUTEROL SULFATE. [Suspect]
     Active Substance: ALBUTEROL SULFATE
     Dosage: 4 TIMES DAILY AS NEEDED
     Route: 055
  11. AMLODIPINE BESYLATE. [Suspect]
     Active Substance: AMLODIPINE BESYLATE
     Route: 048
  12. ADVAIR DISKUS [Suspect]
     Active Substance: FLUTICASONE PROPIONATE\SALMETEROL XINAFOATE
     Dosage: ONE PUFF TWICE DAY
     Route: 055
  13. BOTOX [Suspect]
     Active Substance: ONABOTULINUMTOXINA
     Dosage: INJECTION INTO THE RIGHT FDP (50U) AND FDS (50U) MUSCLES
  14. GABAPENTIN. [Suspect]
     Active Substance: GABAPENTIN
     Route: 048
  15. OXYCODONE HYDROCHLORIDE. [Suspect]
     Active Substance: OXYCODONE HYDROCHLORIDE
     Indication: PAIN
     Dosage: 1 TABLET EVERY FOUR HOURS AS NEEDED
     Route: 048
  16. BACLOFEN. [Suspect]
     Active Substance: BACLOFEN
     Dosage: 197.06 MCG/DAY
     Route: 037
  17. POTASSIUM CHLORIDE CRYS ER [Suspect]
     Active Substance: POTASSIUM CHLORIDE
     Route: 048
  18. FUROSEMIDE. [Suspect]
     Active Substance: FUROSEMIDE
     Route: 048

REACTIONS (3)
  - Pump reservoir issue [None]
  - Muscle spasms [Unknown]
  - Muscle tightness [Unknown]
